FAERS Safety Report 25804913 (Version 1)
Quarter: 2025Q3

REPORT INFORMATION
  Report Type: Spontaneous
  Country: CN (occurrence: CN)
  Receive Date: 20250916
  Receipt Date: 20250916
  Transmission Date: 20251020
  Serious: Yes (Hospitalization, Other)
  Sender: BAXTER
  Company Number: None

PATIENT
  Age: 2 Year
  Sex: Male
  Weight: 14.6 kg

DRUGS (5)
  1. CYCLOPHOSPHAMIDE [Suspect]
     Active Substance: CYCLOPHOSPHAMIDE
     Indication: Acute lymphocytic leukaemia
     Dosage: 0.61 G, QD
     Route: 041
     Dates: start: 20250625, end: 20250625
  2. SODIUM CHLORIDE [Suspect]
     Active Substance: SODIUM CHLORIDE
     Dosage: 250 ML, QD 0.9% INJECTION WITH CYCLOPHOSPHAMIDE
     Route: 041
     Dates: start: 20250625, end: 20250625
  3. SODIUM CHLORIDE [Suspect]
     Active Substance: SODIUM CHLORIDE
     Dosage: 250 ML, QD 0.9% INJECTION WITH CYTRABINE
     Route: 041
     Dates: start: 20250625, end: 20250628
  4. MERCAPTOPURINE [Suspect]
     Active Substance: MERCAPTOPURINE
     Indication: Acute lymphocytic leukaemia
     Dosage: 30 MG, QD (QN)
     Route: 048
     Dates: start: 20250625, end: 20250627
  5. CYTARABINE [Suspect]
     Active Substance: CYTARABINE
     Indication: Acute lymphocytic leukaemia
     Dosage: 0.61 G, BID (Q12H)
     Route: 041
     Dates: start: 20250625, end: 20250628

REACTIONS (1)
  - Myelosuppression [Recovering/Resolving]

NARRATIVE: CASE EVENT DATE: 20250702
